FAERS Safety Report 4850225-6 (Version None)
Quarter: 2005Q4

REPORT INFORMATION
  Report Type: 
  Country: None (occurrence: None)
  Receive Date: 20051123
  Receipt Date: 20050822
  Transmission Date: 20060501
  Serious: Yes (Hospitalization)
  Sender: FDA-Public Use
  Company Number: 2005118458

PATIENT
  Age: 71 Year
  Sex: Male
  Weight: 68.0396 kg

DRUGS (3)
  1. LIPITOR [Suspect]
     Indication: BLOOD CHOLESTEROL
     Dosage: 20 MG (20 MG, 1IN 1 D)
     Dates: start: 19950101, end: 20050819
  2. EFFEXOR [Concomitant]
  3. ATIVAN [Concomitant]

REACTIONS (2)
  - BLOOD CHOLESTEROL INCREASED [None]
  - GLOBAL AMNESIA [None]
